FAERS Safety Report 15857247 (Version 1)
Quarter: 2019Q1

REPORT INFORMATION
  Report Type: Spontaneous
  Country: US (occurrence: US)
  Receive Date: 20190122
  Receipt Date: 20190122
  Transmission Date: 20190417
  Serious: Yes (Life-Threatening, Hospitalization)
  Sender: FDA-Public Use
  Company Number: None

PATIENT
  Age: 69 Year
  Weight: 73.03 kg

DRUGS (7)
  1. HYDROCHLOROTHIAZIDE 25MG [Suspect]
     Active Substance: HYDROCHLOROTHIAZIDE
     Route: 048
  2. VENTOLIN HFA-ALBUTEROL 90 MCG PER ACTUATION [Concomitant]
  3. VALSARTAN 320MG [Suspect]
     Active Substance: VALSARTAN
     Indication: HYPERTENSION
     Route: 048
  4. NIFEDIPINE 30MG [Concomitant]
  5. ZA COL-ZITE 100MG [Concomitant]
  6. IRBESARTAN 300MG [Concomitant]
     Active Substance: IRBESARTAN
  7. NIFEDIPINE ER 90MG KREMERS URBAN [Suspect]
     Active Substance: NIFEDIPINE
     Route: 048

REACTIONS (1)
  - Neoplasm malignant [None]

NARRATIVE: CASE EVENT DATE: 201406
